FAERS Safety Report 18597474 (Version 1)
Quarter: 2020Q4

REPORT INFORMATION
  Report Type: Spontaneous
  Country: US (occurrence: US)
  Receive Date: 20201210
  Receipt Date: 20201210
  Transmission Date: 20210114
  Serious: No
  Sender: FDA-Public Use
  Company Number: US-DRREDDYS-USA/USA/20/0129204

PATIENT

DRUGS (2)
  1. TENEX [Suspect]
     Active Substance: GUANFACINE HYDROCHLORIDE
     Indication: CARDIOMYOPATHY
  2. TENEX [Suspect]
     Active Substance: GUANFACINE HYDROCHLORIDE
     Indication: HYPOTENSION
     Route: 048

REACTIONS (3)
  - Product use in unapproved indication [Unknown]
  - Product quality issue [Unknown]
  - Drug ineffective [Unknown]
